FAERS Safety Report 9428345 (Version 1)
Quarter: 2013Q3

REPORT INFORMATION
  Report Type: Report from Study
  Country: US (occurrence: US)
  Receive Date: 20130730
  Receipt Date: 20130730
  Transmission Date: 20140515
  Serious: No
  Sender: FDA-Public Use
  Company Number: US-ABBOTT-12P-163-0964940-00

PATIENT
  Sex: Female
  Weight: 72.64 kg

DRUGS (4)
  1. NIASPAN (COATED) 500MG [Suspect]
     Indication: LOW DENSITY LIPOPROTEIN ABNORMAL
     Dosage: 2 PILLS OF 500 MG TAKING AT 6PM
     Dates: start: 201006
  2. NIASPAN (COATED) 500MG [Suspect]
     Dates: start: 201207
  3. ASPIRIN [Concomitant]
     Indication: PRODUCT USED FOR UNKNOWN INDICATION
  4. CRESTOR [Concomitant]
     Indication: PRODUCT USED FOR UNKNOWN INDICATION

REACTIONS (1)
  - Blood glucose increased [Recovered/Resolved]
